FAERS Safety Report 7716246-0 (Version None)
Quarter: 2011Q3

REPORT INFORMATION
  Report Type: 
  Country: None (occurrence: None)
  Receive Date: 20110829
  Receipt Date: 20110822
  Transmission Date: 20111222
  Serious: Yes (Other)
  Sender: FDA-Public Use
  Company Number: CN-ASTRAZENECA-2011SE49339

PATIENT
  Age: 45 Year
  Sex: Female

DRUGS (4)
  1. LIDOCAINE [Suspect]
     Dosage: 1 ML/MIN
     Route: 042
  2. LIDOCAINE [Suspect]
     Route: 042
  3. LIDOCAINE [Suspect]
     Indication: VENTRICULAR EXTRASYSTOLES
     Route: 042
  4. LIDOCAINE [Suspect]
     Route: 042

REACTIONS (2)
  - ABNORMAL BEHAVIOUR [None]
  - MENTAL DISORDER [None]
